FAERS Safety Report 7668710-0 (Version None)
Quarter: 2011Q3

REPORT INFORMATION
  Report Type: 
  Country: None (occurrence: None)
  Receive Date: 20110808
  Receipt Date: 20110725
  Transmission Date: 20111222
  Serious: Yes (Hospitalization)
  Sender: FDA-Public Use
  Company Number: US-UCBSA-037833

PATIENT
  Weight: 88.636 kg

DRUGS (1)
  1. CIMZIA [Suspect]
     Route: 058
     Dates: start: 20080625

REACTIONS (3)
  - HAEMORRHAGE [None]
  - OEDEMA PERIPHERAL [None]
  - WEIGHT INCREASED [None]
